FAERS Safety Report 20176140 (Version 3)
Quarter: 2022Q1

REPORT INFORMATION
  Report Type: Spontaneous
  Country: CA (occurrence: CA)
  Receive Date: 20211213
  Receipt Date: 20220203
  Transmission Date: 20220423
  Serious: Yes (Other)
  Sender: FDA-Public Use
  Company Number: CA-PFIZER INC-2020402564

PATIENT
  Age: 68 Year
  Sex: Male
  Weight: 69 kg

DRUGS (4)
  1. RUXIENCE [Suspect]
     Active Substance: RITUXIMAB-PVVR
     Indication: Sjogren^s syndrome
     Dosage: 1000 MG, AT DAY 1 AND 15 (APPROXIMATELY EVERY 3 TO 4 MONTHS)
     Route: 042
     Dates: start: 20201117, end: 20201203
  2. RUXIENCE [Suspect]
     Active Substance: RITUXIMAB-PVVR
     Dosage: 1000 MG, AT DAY 1 AND 15 (APPROXIMATELY EVERY 3 TO 4 MONTHS)
     Route: 042
     Dates: start: 20210324, end: 20210407
  3. RUXIENCE [Suspect]
     Active Substance: RITUXIMAB-PVVR
     Dosage: 1000 MG, AT DAY 1 AND 15
     Route: 042
     Dates: start: 20210818, end: 20210902
  4. RUXIENCE [Suspect]
     Active Substance: RITUXIMAB-PVVR
     Dosage: 1000 MG, AT DAY 1 AND 15
     Route: 042
     Dates: start: 20210902

REACTIONS (7)
  - Basal cell carcinoma [Unknown]
  - Off label use [Unknown]
  - Influenza like illness [Unknown]
  - Infusion site swelling [Recovered/Resolved]
  - Body temperature decreased [Not Recovered/Not Resolved]
  - Ataxia [Unknown]
  - Fall [Unknown]

NARRATIVE: CASE EVENT DATE: 20201201
